FAERS Safety Report 13658766 (Version 1)
Quarter: 2017Q2

REPORT INFORMATION
  Report Type: Spontaneous
  Country: CA (occurrence: US)
  Receive Date: 20170615
  Receipt Date: 20170615
  Transmission Date: 20170830
  Serious: Yes (Hospitalization)
  Sender: FDA-Public Use
  Company Number: None

PATIENT
  Age: 5 Year
  Sex: Male
  Weight: 31.3 kg

DRUGS (3)
  1. CISPLATIN. [Suspect]
     Active Substance: CISPLATIN
     Dates: end: 20170217
  2. CYCLOPHOSPHAMIDE. [Suspect]
     Active Substance: CYCLOPHOSPHAMIDE
     Dates: end: 20170219
  3. VINCRISTINE SULFATE. [Suspect]
     Active Substance: VINCRISTINE SULFATE
     Dates: end: 20170224

REACTIONS (7)
  - Blood count abnormal [None]
  - Retching [None]
  - Pulse absent [None]
  - Febrile neutropenia [None]
  - Unresponsive to stimuli [None]
  - Condition aggravated [None]
  - Oxygen saturation decreased [None]

NARRATIVE: CASE EVENT DATE: 20170227
